FAERS Safety Report 9149581 (Version 1)
Quarter: 2013Q1

REPORT INFORMATION
  Report Type: Spontaneous
  Country: US (occurrence: US)
  Receive Date: 20130308
  Receipt Date: 20130308
  Transmission Date: 20140127
  Serious: No
  Sender: FDA-Public Use
  Company Number: US-ENDO PHARMACEUTICALS INC.-OPCR20120199

PATIENT
  Sex: Male

DRUGS (3)
  1. OPANA ER [Suspect]
     Indication: SPINAL FRACTURE
     Route: 048
     Dates: start: 20120411, end: 2012
  2. OPANA ER [Suspect]
     Indication: NECK PAIN
  3. OPANA ER [Concomitant]
     Dates: start: 2011, end: 201204

REACTIONS (4)
  - Myalgia [Recovered/Resolved]
  - Diarrhoea [Recovered/Resolved]
  - Headache [Recovered/Resolved]
  - Drug ineffective [Recovered/Resolved]
